FAERS Safety Report 7084198-5 (Version None)
Quarter: 2010Q4

REPORT INFORMATION
  Report Type: 
  Country: None (occurrence: None)
  Receive Date: 20101104
  Receipt Date: 20101022
  Transmission Date: 20110411
  Serious: Yes (Hospitalization)
  Sender: FDA-Public Use
  Company Number: IT-MYLANLABS-2010S1019513

PATIENT
  Sex: Female

DRUGS (2)
  1. MIRTAZAPINE [Suspect]
     Indication: PRODUCT USED FOR UNKNOWN INDICATION
  2. AMISULPRIDE [Suspect]
     Indication: PRODUCT USED FOR UNKNOWN INDICATION

REACTIONS (4)
  - BRADYKINESIA [None]
  - BRADYPHRENIA [None]
  - SALIVARY HYPERSECRETION [None]
  - SOPOR [None]
